FAERS Safety Report 7898032-4 (Version None)
Quarter: 2011Q4

REPORT INFORMATION
  Report Type: 
  Country: None (occurrence: None)
  Receive Date: 20111107
  Receipt Date: 20111107
  Transmission Date: 20120403
  Serious: No
  Sender: FDA-Public Use
  Company Number: None

PATIENT
  Age: 48 Year
  Sex: Female
  Weight: 68.038 kg

DRUGS (1)
  1. TOPIRAMATE -GENERIC TOPAMAX- [Suspect]
     Indication: MIGRAINE
     Dosage: 25MG
     Route: 048
     Dates: start: 20110301, end: 20111105

REACTIONS (2)
  - ALOPECIA [None]
  - EMOTIONAL DISTRESS [None]
